FAERS Safety Report 16052880 (Version 1)
Quarter: 2019Q1

REPORT INFORMATION
  Report Type: Spontaneous
  Country: GB (occurrence: GB)
  Receive Date: 20190308
  Receipt Date: 20190308
  Transmission Date: 20190418
  Serious: Yes (Other)
  Sender: FDA-Public Use
  Company Number: GB-JNJFOC-20190239631

PATIENT
  Sex: Male

DRUGS (1)
  1. XEPLION [Suspect]
     Active Substance: PALIPERIDONE PALMITATE
     Indication: ADVERSE DRUG REACTION
     Route: 030

REACTIONS (5)
  - Facial paralysis [Unknown]
  - Off label use [Unknown]
  - Aphasia [Unknown]
  - Hypotension [Unknown]
  - Product use in unapproved indication [Unknown]
